FAERS Safety Report 8289734-9 (Version None)
Quarter: 2012Q2

REPORT INFORMATION
  Report Type: 
  Country: None (occurrence: None)
  Receive Date: 20120417
  Receipt Date: 20120410
  Transmission Date: 20120825
  Serious: No
  Sender: FDA-Public Use
  Company Number: US-PFIZER INC-2012089694

PATIENT
  Sex: Female
  Weight: 104.31 kg

DRUGS (8)
  1. ABILIFY [Concomitant]
     Indication: PARANOIA
     Dosage: UNK
  2. METOPROLOL [Concomitant]
     Indication: HYPERTENSION
     Dosage: 75 MG, 1X/DAY
  3. TRIAMTERENE [Concomitant]
     Indication: HYPERTENSION
     Dosage: UNK, 1X/DAY
  4. TRAZODONE [Concomitant]
     Indication: SLEEP DISORDER
     Dosage: UNK
  5. ZESTRIL [Concomitant]
     Indication: HYPERTENSION
     Dosage: UNK, 1X/DAY
  6. NORVASC [Concomitant]
     Indication: HYPERTENSION
     Dosage: UNK, 1X/DAY
  7. KLONOPIN [Concomitant]
     Dosage: 2 MG, AS NEEDED
  8. EFFEXOR XR [Suspect]
     Indication: BIPOLAR I DISORDER
     Dosage: 150 MG, 2X/DAY
     Route: 048

REACTIONS (1)
  - BLOOD TRIGLYCERIDES INCREASED [None]
